FAERS Safety Report 9200575 (Version 2)
Quarter: 2013Q1

REPORT INFORMATION
  Report Type: Spontaneous
  Country: US (occurrence: US)
  Receive Date: 20130329
  Receipt Date: 20130329
  Transmission Date: 20140127
  Serious: Yes (Other)
  Sender: FDA-Public Use
  Company Number: US-PFIZER INC-2006072283

PATIENT
  Age: 34 Year
  Sex: Female
  Weight: 76.8 kg

DRUGS (5)
  1. IBUPROFEN [Suspect]
     Indication: PAIN
     Dosage: AS NEEDED AND 600 MG 2X/DAY
     Route: 048
     Dates: start: 2002
  2. TRAMADOL HCL [Suspect]
     Indication: PAIN
     Dosage: 25 MG, 4X/DAY
     Route: 048
     Dates: start: 2003
  3. SUMATRIPTAN SUCCINATE [Suspect]
     Indication: PAIN
     Dosage: 25 MG (AVERAGE OF 10 TABS MONTHLY)
     Route: 048
     Dates: start: 2002
  4. AXOTAL [Suspect]
     Indication: PAIN
     Dosage: UNK
     Route: 048
     Dates: start: 2003
  5. OXYCOCET [Suspect]
     Indication: PAIN
     Dosage: UNK
     Route: 048
     Dates: start: 2004

REACTIONS (7)
  - Nephrotic syndrome [Recovered/Resolved]
  - Oedema peripheral [Recovered/Resolved]
  - Dyspnoea [Unknown]
  - Swelling face [Recovered/Resolved]
  - Abdominal rigidity [Unknown]
  - Weight increased [Recovering/Resolving]
  - Incorrect drug administration duration [Recovered/Resolved]
